FAERS Safety Report 4983756-9 (Version None)
Quarter: 2006Q1

REPORT INFORMATION
  Report Type: 
  Country: None (occurrence: None)
  Receive Date: 20060302
  Receipt Date: 20050728
  Transmission Date: 20060701
  Serious: No
  Sender: FDA-Public Use
  Company Number: 215596

PATIENT
  Age: 7 Year
  Sex: Female
  Weight: 20.2 kg

DRUGS (7)
  1. NUTROPIN AQ [Suspect]
     Indication: CONGENITAL CYSTIC KIDNEY DISEASE
     Dosage: 1 MG, QD, SUBCUTANEOUS
     Route: 058
     Dates: start: 20040330
  2. ANTIHYPERTENSIVES (ANTIHYPERTENSIVES NOS) [Concomitant]
  3. ENTERAL NUTRITION (ENTERAL ALIMENTATION) [Concomitant]
  4. ERYTHROPOIETIN (EPOETIN NOS) [Concomitant]
  5. NEPHROVITE (ASCORBIC ACID, BIOTIN, FOLIC ACID, VITAMIN B COMPLEX) [Concomitant]
  6. NEPRO (NUTRITIONAL SUPPLEMENT) [Concomitant]
  7. IRON (IRON) [Concomitant]

REACTIONS (1)
  - BLOOD PARATHYROID HORMONE INCREASED [None]
